FAERS Safety Report 6843638-4 (Version None)
Quarter: 2010Q2

REPORT INFORMATION
  Report Type: 
  Country: None (occurrence: None)
  Receive Date: 20100629
  Receipt Date: 20100406
  Transmission Date: 20101027
  Serious: No
  Sender: FDA-Public Use
  Company Number: US-WYE-H14544110

PATIENT
  Age: 24 Year
  Sex: Male

DRUGS (5)
  1. PRISTIQ [Suspect]
     Indication: DEPRESSION
     Dosage: 50 MG 1X PER 1 DAY
     Dates: start: 20100310
  2. PRISTIQ [Suspect]
     Indication: PAIN
     Dosage: 50 MG 1X PER 1 DAY
     Dates: start: 20100310
  3. PRILOSEC (OMEPRAZOLE) [Concomitant]
  4. ACETAMINOPHEN [Concomitant]
  5. CARAFATE [Concomitant]

REACTIONS (8)
  - ARTHRALGIA [None]
  - BACK PAIN [None]
  - CONDITION AGGRAVATED [None]
  - HEADACHE [None]
  - INSOMNIA [None]
  - MUSCULOSKELETAL STIFFNESS [None]
  - NONSPECIFIC REACTION [None]
  - RESTLESSNESS [None]
